FAERS Safety Report 19278581 (Version 1)
Quarter: 2021Q2

REPORT INFORMATION
  Report Type: Spontaneous
  Country: GB (occurrence: GB)
  Receive Date: 20210520
  Receipt Date: 20210520
  Transmission Date: 20210717
  Serious: Yes (Death)
  Sender: FDA-Public Use
  Company Number: None

PATIENT
  Age: 96 Year
  Sex: Female
  Weight: 56.75 kg

DRUGS (3)
  1. OXYCODONE [Suspect]
     Active Substance: OXYCODONE
  2. BUTRANS [Suspect]
     Active Substance: BUPRENORPHINE
     Indication: PRODUCT USED FOR UNKNOWN INDICATION
     Dates: start: 20200217, end: 20200217
  3. LORAZEPAM. [Suspect]
     Active Substance: LORAZEPAM

REACTIONS (7)
  - General physical health deterioration [None]
  - Dysarthria [None]
  - Illness [None]
  - Product use issue [None]
  - Unresponsive to stimuli [None]
  - Sudden death [None]
  - Agitation [None]

NARRATIVE: CASE EVENT DATE: 20200217
